FAERS Safety Report 26098411 (Version 1)
Quarter: 2025Q4

REPORT INFORMATION
  Report Type: Report from Study
  Country: EG (occurrence: EG)
  Receive Date: 20251127
  Receipt Date: 20251127
  Transmission Date: 20260117
  Serious: Yes (Hospitalization)
  Sender: TAIHO ONCOLOGY INC
  Company Number: EG-SERVIER-S25000594

PATIENT
  Age: 63 Year
  Sex: Female
  Weight: 90 kg

DRUGS (2)
  1. LONSURF [Suspect]
     Active Substance: TIPIRACIL HYDROCHLORIDE\TRIFLURIDINE
     Indication: Colorectal cancer metastatic
     Dosage: 20 MG, ON DAYS 1-5 AND DAYS 8-12 OF EACH 28-DAY CYCLE?PRODUCT START DATE: 02-DEC-2024
     Route: 048
     Dates: end: 202501
  2. BISOPROLOL FUMARATE [Concomitant]
     Active Substance: BISOPROLOL FUMARATE
     Indication: Hypertension
     Dosage: UNK
     Route: 048

REACTIONS (12)
  - Vomiting [Recovered/Resolved]
  - Dehydration [Recovered/Resolved]
  - Pancreatitis [Recovered/Resolved]
  - Biliary obstruction [Recovered/Resolved]
  - Bile duct stone [Recovered/Resolved]
  - Hepatic enzyme increased [Recovered/Resolved]
  - Neutrophil count decreased [Recovered/Resolved]
  - Vomiting [Recovered/Resolved]
  - Underdose [Recovered/Resolved]
  - Vomiting [Recovered/Resolved]
  - Decreased appetite [Recovered/Resolved]
  - Vomiting [Unknown]

NARRATIVE: CASE EVENT DATE: 20241201
